FAERS Safety Report 9271299 (Version 2)
Quarter: 2013Q3

REPORT INFORMATION
  Report Type: Spontaneous
  Country: BR (occurrence: BR)
  Receive Date: 20130506
  Receipt Date: 20130826
  Transmission Date: 20140515
  Serious: Yes (Hospitalization, Other)
  Sender: FDA-Public Use
  Company Number: BR-SANOFI-AVENTIS-2013SA039997

PATIENT
  Sex: Female
  Weight: 57 kg

DRUGS (15)
  1. LANTUS [Suspect]
     Indication: TYPE 1 DIABETES MELLITUS
     Route: 058
     Dates: start: 2008
  2. HUMALOG [Concomitant]
     Indication: TYPE 1 DIABETES MELLITUS
     Dosage: SOMETIMES 10 IU DAILY, ACCORDING TO GLYCEMIC LEVELS
     Route: 058
  3. CLIKSTAR [Concomitant]
     Indication: DEVICE THERAPY
  4. CLIKSTAR [Concomitant]
     Indication: TYPE 1 DIABETES MELLITUS
  5. AMYTRIL [Concomitant]
     Indication: DEPRESSION
  6. SERTRALINE HYDROCHLORIDE [Concomitant]
     Indication: AFFECTIVE DISORDER
     Route: 048
  7. FAMOTIDINE [Concomitant]
     Indication: PAIN
     Route: 048
  8. TRAMADOL HYDROCHLORIDE [Concomitant]
     Indication: PAIN
     Route: 048
  9. FOLIC ACID [Concomitant]
     Indication: PAIN
     Route: 048
  10. PARACETAMOL [Concomitant]
     Indication: PAIN
     Route: 048
  11. IBUPROFEN [Concomitant]
     Indication: PAIN
     Route: 048
  12. AMOXICILLIN [Concomitant]
  13. PARACETAMOL [Concomitant]
     Indication: PAIN
     Dosage: STRENGTH: 500 MG.
     Route: 048
  14. PAMELOR [Concomitant]
     Indication: DEPRESSION
     Route: 048
  15. BROMAZEPAM [Concomitant]
     Indication: BIPOLAR DISORDER
     Route: 048

REACTIONS (19)
  - Benign muscle neoplasm [Recovered/Resolved]
  - Retinal disorder [Recovered/Resolved]
  - Vision blurred [Recovered/Resolved]
  - Diabetic ketoacidosis [Recovered/Resolved]
  - Cataract [Not Recovered/Not Resolved]
  - Visual impairment [Not Recovered/Not Resolved]
  - Visual impairment [Not Recovered/Not Resolved]
  - Eye inflammation [Not Recovered/Not Resolved]
  - Hallucination, visual [Not Recovered/Not Resolved]
  - Musculoskeletal pain [Not Recovered/Not Resolved]
  - Device failure [Unknown]
  - Muscular weakness [Recovered/Resolved]
  - Pain in extremity [Recovered/Resolved]
  - Liver disorder [Not Recovered/Not Resolved]
  - Pain [Not Recovered/Not Resolved]
  - Fall [Recovered/Resolved]
  - Ligament sprain [Recovered/Resolved]
  - Tendonitis [Not Recovered/Not Resolved]
  - Pain [Not Recovered/Not Resolved]
